FAERS Safety Report 9208703 (Version 2)
Quarter: 2013Q2

REPORT INFORMATION
  Report Type: Spontaneous
  Country: US (occurrence: US)
  Receive Date: 20130404
  Receipt Date: 20130522
  Transmission Date: 20140414
  Serious: No
  Sender: FDA-Public Use
  Company Number: US-009507513-1304USA000691

PATIENT
  Age: 19 Year
  Sex: Female
  Weight: 55.78 kg

DRUGS (2)
  1. NUVARING [Suspect]
     Indication: CONTRACEPTION
     Dosage: UNK
     Route: 067
     Dates: start: 20130328
  2. LAMOTRIGINE [Interacting]
     Indication: BIPOLAR DISORDER
     Dosage: UNK

REACTIONS (2)
  - Vulvovaginal pruritus [Unknown]
  - Drug interaction [Unknown]
